FAERS Safety Report 21619633 (Version 2)
Quarter: 2023Q1

REPORT INFORMATION
  Report Type: Spontaneous
  Country: RU (occurrence: RU)
  Receive Date: 20221121
  Receipt Date: 20230106
  Transmission Date: 20230418
  Serious: Yes (Other)
  Sender: FDA-Public Use
  Company Number: RU-NOVOPROD-980702

PATIENT
  Age: 30 Year
  Sex: Female

DRUGS (2)
  1. FIASP [Suspect]
     Active Substance: INSULIN ASPART
     Dosage: 14 IU, QD (4IU-6IU-4IU)
     Route: 058
     Dates: end: 202211
  2. FIASP [Suspect]
     Active Substance: INSULIN ASPART
     Indication: Diabetes mellitus
     Dosage: 14 IU, QD (4IU-6IU-4IU)
     Route: 058
     Dates: end: 202211

REACTIONS (2)
  - Diabetic metabolic decompensation [Recovered/Resolved]
  - Drug ineffective [Recovered/Resolved]

NARRATIVE: CASE EVENT DATE: 20221101
